FAERS Safety Report 5299982-8 (Version None)
Quarter: 2007Q2

REPORT INFORMATION
  Report Type: 
  Country: None (occurrence: None)
  Receive Date: 20070410
  Receipt Date: 20070404
  Transmission Date: 20071010
  Serious: Yes (Hospitalization)
  Sender: FDA-Public Use
  Company Number: B0464984A

PATIENT
  Age: 5 Year
  Sex: Male
  Weight: 19.9583 kg

DRUGS (4)
  1. AUGMENTIN '125' [Suspect]
     Indication: RHINITIS
     Dosage: 1 UNIT/THREE TIMES PER DAY/ORAL
     Route: 048
     Dates: start: 20070226, end: 20070303
  2. FLUTICASONE PROPIONATE+SALMETEROL XINAFOATE (FORMULATION UNK (FLUTICAS [Suspect]
     Indication: RHINITIS
     Dosage: 1 PUFF (S)/TWICE PER DAY/INHALED
     Route: 055
     Dates: start: 20070218, end: 20070303
  3. SOLACY (FORMULATION UNKNOWN) (SOLACY) [Suspect]
     Dosage: ORAL
     Route: 048
     Dates: start: 20070205, end: 20070303
  4. DESLORATADINE [Concomitant]

REACTIONS (4)
  - MYCOPLASMA INFECTION [None]
  - RASH ERYTHEMATOUS [None]
  - RASH PRURITIC [None]
  - SERUM SICKNESS [None]
